FAERS Safety Report 23915831 (Version 1)
Quarter: 2024Q2

REPORT INFORMATION
  Report Type: Spontaneous
  Country: US (occurrence: US)
  Receive Date: 20240529
  Receipt Date: 20240529
  Transmission Date: 20240716
  Serious: No
  Sender: FDA-Public Use
  Company Number: US-ABBVIE-5774295

PATIENT
  Age: 35 Year
  Sex: Male

DRUGS (1)
  1. RINVOQ [Suspect]
     Active Substance: UPADACITINIB
     Indication: Crohn^s disease
     Dosage: LAST ADMIN DATE 2024.
     Route: 048
     Dates: start: 202402

REACTIONS (2)
  - Folliculitis [Recovering/Resolving]
  - Lipids increased [Recovering/Resolving]
